FAERS Safety Report 8603784-1 (Version None)
Quarter: 2012Q3

REPORT INFORMATION
  Report Type: 
  Country: None (occurrence: None)
  Receive Date: 20120817
  Receipt Date: 20120808
  Transmission Date: 20120928
  Serious: No
  Sender: FDA-Public Use
  Company Number: US-ASTRAZENECA-2011SE57070

PATIENT
  Age: 58 Year
  Sex: Female
  Weight: 74.4 kg

DRUGS (7)
  1. NEXIUM [Suspect]
     Indication: CHEST PAIN
     Dosage: DAILY
     Route: 048
     Dates: start: 20090101
  2. TEGRETOL [Concomitant]
     Indication: CONVULSION
  3. NEXIUM [Suspect]
     Dosage: TWICE DAILY
     Route: 048
  4. NEXIUM [Suspect]
     Route: 048
     Dates: start: 20090101, end: 20090101
  5. NEUROLOGY MEDICINES [Concomitant]
  6. NEXIUM [Suspect]
     Dosage: AT NIGHT
     Route: 048
  7. CAMPRAL [Concomitant]
     Indication: CONVULSION

REACTIONS (8)
  - RHEUMATOID ARTHRITIS [None]
  - ARTHRALGIA [None]
  - OFF LABEL USE [None]
  - MYALGIA [None]
  - OEDEMA PERIPHERAL [None]
  - JOINT SWELLING [None]
  - JOINT STIFFNESS [None]
  - WEIGHT DECREASED [None]
